FAERS Safety Report 4712322-5 (Version None)
Quarter: 2005Q3

REPORT INFORMATION
  Report Type: 
  Country: None (occurrence: None)
  Receive Date: 20050711
  Receipt Date: 20050627
  Transmission Date: 20060218
  Serious: Yes (Hospitalization, Other)
  Sender: FDA-Public Use
  Company Number: 2005094202

PATIENT
  Age: 60 Year
  Sex: Female
  Weight: 53.0709 kg

DRUGS (3)
  1. CELEBREX [Suspect]
     Indication: INTERVERTEBRAL DISC PROTRUSION
     Dosage: 100 MG (100 MG, 1 IN 1 D), ORAL
     Route: 048
     Dates: start: 20020101
  2. BENADRYL [Concomitant]
  3. ESTRADIOL [Concomitant]

REACTIONS (12)
  - BLOOD CHOLESTEROL INCREASED [None]
  - BLOOD PRESSURE DIASTOLIC DECREASED [None]
  - BLOOD PRESSURE SYSTOLIC INCREASED [None]
  - CARDIAC ANEURYSM [None]
  - CARDIOMEGALY [None]
  - DYSPNOEA [None]
  - HAEMOGLOBIN DECREASED [None]
  - LIVER FUNCTION TEST ABNORMAL [None]
  - MITRAL VALVE PROLAPSE [None]
  - ODYNOPHAGIA [None]
  - PAIN [None]
  - PROTEIN TOTAL DECREASED [None]
